FAERS Safety Report 9434819 (Version 1)
Quarter: 2013Q3

REPORT INFORMATION
  Report Type: Spontaneous
  Country: US (occurrence: None)
  Receive Date: 20130731
  Receipt Date: 20130731
  Transmission Date: 20140515
  Serious: Yes (Other)
  Sender: FDA-Public Use
  Company Number: None

PATIENT
  Age: 73 Year
  Sex: Male
  Weight: 113.4 kg

DRUGS (1)
  1. ABILIFY [Suspect]
     Indication: DEPRESSION
     Route: 048
     Dates: start: 20120730, end: 20130730

REACTIONS (4)
  - Muscle spasms [None]
  - Bruxism [None]
  - Ageusia [None]
  - Drug dependence [None]
